FAERS Safety Report 12106396 (Version 2)
Quarter: 2016Q2

REPORT INFORMATION
  Report Type: Report from Study
  Country: US (occurrence: US)
  Receive Date: 20160223
  Receipt Date: 20160408
  Transmission Date: 20160815
  Serious: Yes (Death, Hospitalization)
  Sender: FDA-Public Use
  Company Number: US-ACTELION-A-US2016-131653

PATIENT
  Age: 3 Year
  Sex: Male

DRUGS (12)
  1. VITAMIN D [Concomitant]
     Active Substance: CHOLECALCIFEROL
     Dosage: 400 U, QD
     Dates: start: 20140626, end: 201603
  2. MELATONIN [Concomitant]
     Active Substance: MELATONIN
     Dosage: 1.5 MG, QD
     Dates: start: 20140626
  3. KEPPRA [Concomitant]
     Active Substance: LEVETIRACETAM
     Dosage: 350 MG, BID
     Route: 048
     Dates: start: 20140626, end: 201603
  4. ROBINUL [Concomitant]
     Active Substance: GLYCOPYRROLATE
     Dosage: 1 DOSE, AS DIRECTED
     Dates: start: 20151005, end: 201603
  5. CHILDRENS MOTRIN [Concomitant]
     Active Substance: IBUPROFEN
     Dosage: 1 DOSE, PRN
     Dates: start: 20140626, end: 201603
  6. MIRALAX [Concomitant]
     Active Substance: POLYETHYLENE GLYCOL 3350
     Dosage: 0.5 CAPFUL, QD
     Dates: start: 20140626, end: 201603
  7. ZAVESCA [Suspect]
     Active Substance: MIGLUSTAT
     Indication: LIPIDOSIS
     Dosage: 100 MG, TID
     Route: 048
     Dates: start: 20140626
  8. CLONAZEPAM. [Concomitant]
     Active Substance: CLONAZEPAM
     Dosage: 1 TABLET, QD
     Dates: start: 20140626, end: 201603
  9. CETIRIZINE [Concomitant]
     Active Substance: CETIRIZINE HYDROCHLORIDE
     Dosage: 2.5 MG, PRN
     Dates: start: 20140626, end: 201603
  10. LORAZEPAM. [Concomitant]
     Active Substance: LORAZEPAM
     Dosage: 1 TABLET, PRN
     Dates: start: 20140626, end: 201603
  11. TYLENOL [Concomitant]
     Active Substance: ACETAMINOPHEN
     Dosage: 1 DOSE, PRN
     Dates: start: 20140626, end: 201603
  12. SENNA LAXATIVE [Concomitant]
     Active Substance: SENNOSIDES
     Dosage: 4.4 MG, PRN
     Dates: start: 20140626, end: 201603

REACTIONS (2)
  - Death [Fatal]
  - Influenza [Recovered/Resolved]

NARRATIVE: CASE EVENT DATE: 201603
